FAERS Safety Report 7364147-2 (Version None)
Quarter: 2011Q1

REPORT INFORMATION
  Report Type: 
  Country: None (occurrence: None)
  Receive Date: 20110321
  Receipt Date: 20110315
  Transmission Date: 20110831
  Serious: Yes (Death)
  Sender: FDA-Public Use
  Company Number: PHHY2011TW20378

PATIENT
  Sex: Male

DRUGS (1)
  1. AMN107 [Suspect]
     Indication: CHRONIC MYELOID LEUKAEMIA
     Dosage: 400 MG, UNK
     Route: 048
     Dates: start: 20090703, end: 20100101

REACTIONS (5)
  - PLEURAL EFFUSION [None]
  - DYSPNOEA EXERTIONAL [None]
  - PRODUCTIVE COUGH [None]
  - CARDIOPULMONARY FAILURE [None]
  - DYSPNOEA [None]
